FAERS Safety Report 10916501 (Version 1)
Quarter: 2015Q1

REPORT INFORMATION
  Report Type: Spontaneous
  Country: US (occurrence: None)
  Receive Date: 20150312
  Receipt Date: 20150312
  Transmission Date: 20150721
  Serious: Yes (Other)
  Sender: FDA-Public Use
  Company Number: None

PATIENT
  Age: 35 Year
  Sex: Female

DRUGS (1)
  1. PARAGARD T 380A [Suspect]
     Active Substance: COPPER
     Indication: CONTRACEPTION
     Dosage: IN UTERINE
     Route: 015

REACTIONS (5)
  - Dysmenorrhoea [None]
  - Quality of life decreased [None]
  - Endometritis [None]
  - Pelvic inflammatory disease [None]
  - Menorrhagia [None]
